FAERS Safety Report 5080972-5 (Version None)
Quarter: 2006Q3

REPORT INFORMATION
  Report Type: 
  Country: None (occurrence: None)
  Receive Date: 20060720
  Receipt Date: 20051130
  Transmission Date: 20061208
  Serious: Yes (Other)
  Sender: FDA-Public Use
  Company Number: 2005162249

PATIENT
  Sex: Male
  Weight: 70.3075 kg

DRUGS (10)
  1. CELEBREX [Suspect]
     Indication: ARTHRALGIA
     Dosage: (1 D), ORAL
     Route: 048
     Dates: start: 19990101, end: 20050805
  2. NABUMETONE [Suspect]
     Indication: ARTHRALGIA
     Dosage: 1500 MG (750 MG, 2 IN 1 D), UNKNOWN
     Dates: start: 20051031, end: 20051123
  3. WELLBUTRIN XL [Concomitant]
  4. LEXAPRO [Concomitant]
  5. KLONOPIN [Concomitant]
  6. VITAMINS (VITAMINS) [Concomitant]
  7. FIBRE DIETARY (FIBRE, DIETARY) [Concomitant]
  8. DARVOCET [Concomitant]
  9. DOCUSATE SODIUM (DOCUSATE SODIUM) [Concomitant]
  10. NITROBID (GLYCERYL TRINITRATE) [Concomitant]

REACTIONS (5)
  - ARTHRALGIA [None]
  - CONSTIPATION [None]
  - HAEMORRHOIDS [None]
  - RECTAL HAEMORRHAGE [None]
  - WEIGHT INCREASED [None]
